FAERS Safety Report 11850556 (Version 1)
Quarter: 2015Q4

REPORT INFORMATION
  Report Type: Spontaneous
  Country: US (occurrence: US)
  Receive Date: 20151218
  Receipt Date: 20151218
  Transmission Date: 20160305
  Serious: No
  Sender: FDA-Public Use
  Company Number: US-JNJFOC-20151122929

PATIENT
  Age: 30 Month
  Sex: Female
  Weight: 15.88 kg

DRUGS (2)
  1. CHILDRENS TYLENOL [Suspect]
     Active Substance: ACETAMINOPHEN
     Indication: ACCIDENTAL EXPOSURE TO PRODUCT
     Dosage: 1 TEASPOON
     Route: 048
     Dates: start: 20151123, end: 20151123
  2. OTHER COUGH SUPPRESSANTS [Concomitant]
     Indication: COUGH
     Dosage: 2 TSP
     Route: 065
     Dates: start: 20151123

REACTIONS (2)
  - Accidental exposure to product by child [Unknown]
  - Failure of child resistant mechanism for pharmaceutical product [Unknown]

NARRATIVE: CASE EVENT DATE: 20151123
